FAERS Safety Report 20728088 (Version 1)
Quarter: 2022Q2

REPORT INFORMATION
  Report Type: Report from Study
  Country: NL (occurrence: NL)
  Receive Date: 20220420
  Receipt Date: 20220420
  Transmission Date: 20220721
  Serious: Yes (Other)
  Sender: FDA-Public Use
  Company Number: NL-AstraZeneca-2022A062721

PATIENT
  Sex: Female
  Weight: 8.5 kg

DRUGS (4)
  1. SYNAGIS [Suspect]
     Active Substance: PALIVIZUMAB
     Indication: Product used for unknown indication
     Route: 030
     Dates: start: 20210811
  2. SYNAGIS [Suspect]
     Active Substance: PALIVIZUMAB
     Indication: Autoimmune disorder
     Route: 030
     Dates: start: 20210811
  3. SYNAGIS [Suspect]
     Active Substance: PALIVIZUMAB
     Indication: Product used for unknown indication
     Route: 030
     Dates: start: 20210811
  4. SYNAGIS [Suspect]
     Active Substance: PALIVIZUMAB
     Indication: Autoimmune disorder
     Route: 030
     Dates: start: 20210811

REACTIONS (6)
  - Weight decreased [Unknown]
  - Illness [Unknown]
  - Growth disorder [Unknown]
  - COVID-19 [Recovered/Resolved]
  - Infection [Recovered/Resolved]
  - Off label use [Unknown]
